FAERS Safety Report 13595882 (Version 1)
Quarter: 2017Q2

REPORT INFORMATION
  Report Type: Spontaneous
  Country: US (occurrence: US)
  Receive Date: 20170531
  Receipt Date: 20170531
  Transmission Date: 20170830
  Serious: No
  Sender: FDA-Public Use
  Company Number: US-JNJFOC-20170510094

PATIENT
  Age: 9 Decade
  Sex: Female

DRUGS (2)
  1. TYLENOL EXTRA STRENGTH [Suspect]
     Active Substance: ACETAMINOPHEN
     Indication: TEMPOROMANDIBULAR JOINT SYNDROME
     Dosage: ONE CAPLET, 2 TIMES IN A DAY AS NEEDED, (IF HER PAIN IS BAD), NEVER TAKES MORE THAN TWICE A DAY
     Route: 048
  2. TYLENOL EXTRA STRENGTH [Suspect]
     Active Substance: ACETAMINOPHEN
     Indication: BACK PAIN
     Dosage: ONE CAPLET, 2 TIMES IN A DAY AS NEEDED, (IF HER PAIN IS BAD), NEVER TAKES MORE THAN TWICE A DAY
     Route: 048

REACTIONS (1)
  - Incorrect dose administered [Unknown]
